FAERS Safety Report 7553722-8 (Version None)
Quarter: 2011Q2

REPORT INFORMATION
  Report Type: 
  Country: None (occurrence: None)
  Receive Date: 20110609
  Receipt Date: 20110527
  Transmission Date: 20111010
  Serious: Yes (Hospitalization, Other)
  Sender: FDA-Public Use
  Company Number: 1000015702

PATIENT
  Age: 20 Year
  Sex: Female
  Weight: 82 kg

DRUGS (1)
  1. CITALOPRAM HYDROBROMIDE [Suspect]
     Indication: DEPRESSION
     Dosage: 40 MG (40 MG, 1 IN 1 D), ORAL
     Route: 048
     Dates: start: 20100401

REACTIONS (9)
  - CAESAREAN SECTION [None]
  - REFUSAL OF TREATMENT BY PATIENT [None]
  - DRUG EXPOSURE DURING PREGNANCY [None]
  - ANAEMIA OF PREGNANCY [None]
  - PROLONGED PREGNANCY [None]
  - C-REACTIVE PROTEIN INCREASED [None]
  - PROLONGED LABOUR [None]
  - OBSTRUCTED LABOUR [None]
  - PUERPERAL PYREXIA [None]
